FAERS Safety Report 9541813 (Version 1)
Quarter: 2013Q3

REPORT INFORMATION
  Report Type: Report from Study
  Country: US (occurrence: US)
  Receive Date: 20130923
  Receipt Date: 20130923
  Transmission Date: 20140515
  Serious: Yes (Hospitalization)
  Sender: FDA-Public Use
  Company Number: PHEH2013US019685

PATIENT
  Age: 25 Year
  Sex: Female

DRUGS (4)
  1. TOBI [Suspect]
     Indication: CYSTIC FIBROSIS
     Dosage: 300 MG, BID
     Dates: start: 2012, end: 2013
  2. PULMOZYME [Concomitant]
     Dosage: UNK
  3. SODIUM CHLORIDE [Concomitant]
     Dosage: UNK
  4. CAYSTON [Concomitant]
     Dosage: UNK

REACTIONS (3)
  - Infection [Unknown]
  - Hypersensitivity [Unknown]
  - Haemoptysis [Unknown]
